FAERS Safety Report 7382448-9 (Version None)
Quarter: 2011Q1

REPORT INFORMATION
  Report Type: 
  Country: None (occurrence: None)
  Receive Date: 20110329
  Receipt Date: 20110228
  Transmission Date: 20110831
  Serious: No
  Sender: FDA-Public Use
  Company Number: US-BAYER-2011-022182

PATIENT
  Sex: Female
  Weight: 63 kg

DRUGS (2)
  1. ALEVE (CAPLET) [Suspect]
     Indication: HEADACHE
     Dosage: BOTTLE COUNT 100S
     Route: 048
     Dates: start: 20110225
  2. LISINOPRIL [Concomitant]

REACTIONS (1)
  - HEADACHE [None]
